FAERS Safety Report 7201055-1 (Version None)
Quarter: 2010Q4

REPORT INFORMATION
  Report Type: 
  Country: None (occurrence: None)
  Receive Date: 20101229
  Receipt Date: 20101220
  Transmission Date: 20110411
  Serious: Yes (Death)
  Sender: FDA-Public Use
  Company Number: US-BIOGENIDEC-2010BI044518

PATIENT
  Age: 44 Year
  Sex: Female

DRUGS (8)
  1. TYSABRI [Suspect]
     Indication: MULTIPLE SCLEROSIS
     Route: 042
     Dates: start: 20080423
  2. TIZANIDINE HCL [Concomitant]
     Indication: SLEEP DISORDER
  3. ALLEGRA [Concomitant]
  4. NUVIGIL [Concomitant]
     Indication: FATIGUE
  5. ADVAIR [Concomitant]
     Indication: ASTHMA
  6. HYDROMORPHONE HCL [Concomitant]
  7. OPANA [Concomitant]
  8. LUNESTA [Concomitant]

REACTIONS (1)
  - DEATH [None]
